FAERS Safety Report 4399276-9 (Version None)
Quarter: 2004Q3

REPORT INFORMATION
  Report Type: 
  Country: None (occurrence: None)
  Receive Date: 20040712
  Receipt Date: 20040408
  Transmission Date: 20050211
  Serious: Yes (Hospitalization)
  Sender: FDA-Public Use
  Company Number: F01200400745

PATIENT
  Age: 57 Year
  Sex: Female

DRUGS (21)
  1. (OXALIPLATIN) - SOLUTION - 130 MG/M2 [Suspect]
     Indication: COLORECTAL CANCER
     Dosage: 130 MG/M2 Q3W
     Route: 042
     Dates: start: 20040317, end: 20040317
  2. CAPECITABINE - TABLET 850 MG/M2 [Suspect]
     Dosage: 850 MG/M2 TWICE DAILY FROM D1 TO D15, Q3W
     Route: 048
     Dates: start: 20040317, end: 20040331
  3. AVASTIN [Suspect]
     Dosage: 7.5 MG/KG OVER 30-90 MINUTES IV INFUSION ON DAY 1, Q3W
     Route: 042
     Dates: start: 20040317, end: 20040317
  4. LEVOTHYROXINE SODIUM [Concomitant]
  5. ZOLPIDEM TARTRATE [Concomitant]
  6. PAROXETINE HYDROCHLORIDE [Concomitant]
  7. IRON [Concomitant]
  8. FAMOTIDINE [Concomitant]
  9. ENSURE [Concomitant]
  10. COZAAR [Concomitant]
  11. VALACYCLOVIR HYDROCHLORIDE (ACYCLOVIR) [Concomitant]
  12. JUICE PLUS [Concomitant]
  13. WARFARIN SODIUM [Concomitant]
  14. LORAZEPAM [Concomitant]
  15. LOPERAMIDE HCL (LOPERAMIDE HYDROCHLORIDE) [Concomitant]
  16. PARAGORIC [Concomitant]
  17. GAS X (DIMETICONE, ACTIVATED) [Concomitant]
  18. ACETAMINOPHEN WITH PSEUDOEPHEDRINE (ACETAMINOPEN W/PSEUDOEPHEDRINE) [Concomitant]
  19. PROCHLORPERAZINE [Concomitant]
  20. DOLASETRON [Concomitant]
  21. DEXAMETHASONE [Concomitant]

REACTIONS (5)
  - ABDOMINAL PAIN [None]
  - DEHYDRATION [None]
  - ENTERITIS [None]
  - NEUTROPENIA [None]
  - SMALL INTESTINAL OBSTRUCTION [None]
